FAERS Safety Report 23124281 (Version 1)
Quarter: 2023Q4

REPORT INFORMATION
  Report Type: Spontaneous
  Country: US (occurrence: None)
  Receive Date: 20231027
  Receipt Date: 20231027
  Transmission Date: 20240109
  Serious: Yes (unspecified)
  Sender: FDA-Public Use
  Company Number: None

PATIENT
  Age: 69 Year
  Sex: Female
  Weight: 56.25 kg

DRUGS (4)
  1. OLMESARTAN MEDOXOMIL [Suspect]
     Active Substance: OLMESARTAN MEDOXOMIL
     Indication: Hypertension
     Dosage: OTHER QUANTITY : 1 TABLET(S);?FREQUENCY : DAILY;?
     Route: 048
  2. Amlodipinev [Concomitant]
  3. Heme vite plus one [Concomitant]
  4. CALCIUM [Concomitant]
     Active Substance: CALCIUM

REACTIONS (9)
  - Diarrhoea [None]
  - Muscle spasms [None]
  - Weight decreased [None]
  - Decreased appetite [None]
  - Abdominal discomfort [None]
  - Laboratory test abnormal [None]
  - Faecal calprotectin abnormal [None]
  - Asthenia [None]
  - Asthenia [None]

NARRATIVE: CASE EVENT DATE: 20221222
